FAERS Safety Report 23399688 (Version 1)
Quarter: 2024Q1

REPORT INFORMATION
  Report Type: Report from Study
  Country: US (occurrence: US)
  Receive Date: 20240113
  Receipt Date: 20240113
  Transmission Date: 20240410
  Serious: Yes (Hospitalization)
  Sender: FDA-Public Use
  Company Number: US-TEVA-VS-3134598

PATIENT
  Age: 55 Year

DRUGS (1)
  1. NITROFURANTOIN [Suspect]
     Active Substance: NITROFURANTOIN
     Indication: Urinary tract infection
     Route: 065

REACTIONS (4)
  - Drug-induced liver injury [Unknown]
  - Hepatic failure [Unknown]
  - Hepatitis acute [Unknown]
  - Mental status changes [Unknown]
